FAERS Safety Report 23593665 (Version 4)
Quarter: 2024Q1

REPORT INFORMATION
  Report Type: Spontaneous
  Country: US (occurrence: US)
  Receive Date: 20240304
  Receipt Date: 20240326
  Transmission Date: 20240409
  Serious: No
  Sender: FDA-Public Use
  Company Number: US-JNJFOC-20240258177

PATIENT
  Age: 61 Year
  Sex: Female

DRUGS (1)
  1. TREMFYA [Suspect]
     Active Substance: GUSELKUMAB
     Indication: Psoriasis
     Route: 065
     Dates: start: 20240220

REACTIONS (4)
  - Device issue [Unknown]
  - Injection site haemorrhage [Unknown]
  - Inappropriate schedule of product administration [Unknown]
  - Device use issue [Unknown]

NARRATIVE: CASE EVENT DATE: 20240220
